FAERS Safety Report 24467864 (Version 1)
Quarter: 2024Q4

REPORT INFORMATION
  Report Type: Spontaneous
  Country: US (occurrence: US)
  Receive Date: 20241018
  Receipt Date: 20241018
  Transmission Date: 20250115
  Serious: No
  Sender: Phathom Pharmaceuticals
  Company Number: US-PHATHOM PHARMACEUTICALS INC.-2024PHT00661

PATIENT
  Age: 51 Year
  Sex: Female

DRUGS (16)
  1. VOQUEZNA [Suspect]
     Active Substance: VONOPRAZAN FUMARATE
     Indication: Gastrooesophageal reflux disease
     Dosage: 20 MG, 1X/DAY
     Route: 048
     Dates: start: 20240719
  2. EZETIMIBE [Concomitant]
     Active Substance: EZETIMIBE
  3. BUPROPION [Concomitant]
     Active Substance: BUPROPION
  4. LASIX [Concomitant]
     Active Substance: FUROSEMIDE
  5. RAMIPRIL [Concomitant]
     Active Substance: RAMIPRIL
  6. ZOFRAN [Concomitant]
     Active Substance: ONDANSETRON HYDROCHLORIDE
  7. ATORVASTATIN [Concomitant]
     Active Substance: ATORVASTATIN
  8. OZEMPIC [Concomitant]
     Active Substance: SEMAGLUTIDE
  9. LEVOTHYROXINE [Concomitant]
     Active Substance: LEVOTHYROXINE
  10. CALCITRIOL [Concomitant]
     Active Substance: CALCITRIOL
  11. JYNARQUE [Concomitant]
     Active Substance: TOLVAPTAN
  12. CITALOPRAM [Concomitant]
     Active Substance: CITALOPRAM
  13. ASPIRIN [Concomitant]
     Active Substance: ASPIRIN
  14. ACETAMINOPHEN\HYDROCODONE [Concomitant]
     Active Substance: ACETAMINOPHEN\HYDROCODONE
  15. LINZESS [Concomitant]
     Active Substance: LINACLOTIDE
  16. PROMETHAZINE [Concomitant]
     Active Substance: PROMETHAZINE HYDROCHLORIDE

REACTIONS (1)
  - Therapeutic product effect decreased [Not Recovered/Not Resolved]

NARRATIVE: CASE EVENT DATE: 20240726
